FAERS Safety Report 24669254 (Version 2)
Quarter: 2024Q4

REPORT INFORMATION
  Report Type: Report from Study
  Country: IN (occurrence: IN)
  Receive Date: 20241127
  Receipt Date: 20241219
  Transmission Date: 20250115
  Serious: Yes (Hospitalization)
  Sender: CIPLA
  Company Number: IN-CIPLA LTD.-2024IN13616

PATIENT

DRUGS (8)
  1. SPIRONOLACTONE\TORSEMIDE [Suspect]
     Active Substance: SPIRONOLACTONE\TORSEMIDE
     Indication: Product used for unknown indication
     Dosage: UNK, 10/25 MG, 1/2 DOSE AND 1 FREQUENCY (UNITS UNSPECIFIED) (STRENGTH: 10/25 MG)
     Route: 048
     Dates: start: 20241111
  2. METOPROLOL SUCCINATE [Suspect]
     Active Substance: METOPROLOL SUCCINATE
     Indication: Product used for unknown indication
     Dosage: UNK, 1 DOSE AND 1 FREQUENCY (UNITS UNSPECIFIED)
     Route: 048
     Dates: start: 20241111
  3. ASPIRIN [Concomitant]
     Active Substance: ASPIRIN
     Indication: Product used for unknown indication
     Dosage: UNK
     Route: 065
  4. ZANAMET [Concomitant]
     Indication: Product used for unknown indication
     Dosage: UNK, 50/100 MG
     Route: 065
  5. OXRA [Concomitant]
     Indication: Product used for unknown indication
     Dosage: UNK
     Route: 065
  6. PANTOPRAZOLE SODIUM [Concomitant]
     Active Substance: PANTOPRAZOLE SODIUM
     Indication: Product used for unknown indication
     Dosage: UNK
     Route: 065
  7. METFORMIN [Concomitant]
     Active Substance: METFORMIN HYDROCHLORIDE
     Indication: Type 2 diabetes mellitus
     Dosage: 1000 MG, UNK
     Route: 065
  8. VYLDA [Concomitant]
     Indication: Type 2 diabetes mellitus
     Dosage: 15 MG, UNK
     Route: 065

REACTIONS (2)
  - Paraesthesia [Recovered/Resolved]
  - Asthenia [Recovered/Resolved]

NARRATIVE: CASE EVENT DATE: 20241101
